FAERS Safety Report 8308910-X (Version None)
Quarter: 2012Q2

REPORT INFORMATION
  Report Type: 
  Country: None (occurrence: None)
  Receive Date: 20120424
  Receipt Date: 20120420
  Transmission Date: 20120825
  Serious: Yes (Hospitalization)
  Sender: FDA-Public Use
  Company Number: FI-AMGEN-FINSP2012014953

PATIENT
  Age: 21 Year
  Sex: Male
  Weight: 115 kg

DRUGS (9)
  1. PRIVIGEN                           /00025201/ [Concomitant]
     Dosage: UNK
     Dates: start: 20111114
  2. PREDNISOLONE [Concomitant]
     Indication: IDIOPATHIC THROMBOCYTOPENIC PURPURA
     Dosage: 40 MG, QD
     Route: 048
     Dates: start: 20110910
  3. KALCIPOS-D [Concomitant]
     Indication: SUPPLEMENTATION THERAPY
     Dosage: UNK UNK, BID
     Route: 048
     Dates: start: 20110916
  4. PLATELETS [Concomitant]
     Indication: PLATELET COUNT DECREASED
  5. NPLATE [Suspect]
     Indication: IDIOPATHIC THROMBOCYTOPENIC PURPURA
     Dosage: 3-4 MUG/KG, UNK
     Route: 058
     Dates: start: 20110919, end: 20111229
  6. OMEPRAZOLE [Concomitant]
     Indication: PROPHYLAXIS
     Dosage: 40 MG, QD
     Route: 048
     Dates: start: 20110910
  7. VITAMIN D [Concomitant]
  8. PRIVIGEN                           /00025201/ [Concomitant]
     Indication: IDIOPATHIC THROMBOCYTOPENIC PURPURA
     Dosage: 0.4 G/KG/DAY
     Dates: start: 20110910, end: 20110914
  9. CALCIUM [Concomitant]

REACTIONS (3)
  - HYPOAESTHESIA [None]
  - PULMONARY EMBOLISM [None]
  - HAEMORRHAGE [None]
